FAERS Safety Report 6214552-2 (Version None)
Quarter: 2009Q2

REPORT INFORMATION
  Report Type: 
  Country: None (occurrence: None)
  Receive Date: 20090604
  Receipt Date: 20090528
  Transmission Date: 20091009
  Serious: Yes (Other)
  Sender: FDA-Public Use
  Company Number: US-AVENTIS-200914539US

PATIENT
  Age: 61 Year
  Sex: Female

DRUGS (3)
  1. ALLEGRA D 24 HOUR [Suspect]
     Dosage: DOSE: 1 TABLET
     Route: 048
     Dates: start: 20090101
  2. HYDROCODONE BITARTRATE [Suspect]
     Indication: ANALGESIC THERAPY
     Dosage: DOSE: UNK
     Dates: start: 20090501
  3. CLINDAMYCIN [Concomitant]
     Dosage: DOSE: UNK

REACTIONS (3)
  - DIZZINESS [None]
  - ERYTHEMA [None]
  - SYNCOPE [None]
